FAERS Safety Report 5052614-6 (Version None)
Quarter: 2006Q3

REPORT INFORMATION
  Report Type: 
  Country: None (occurrence: None)
  Receive Date: 20060717
  Receipt Date: 20060711
  Transmission Date: 20061208
  Serious: Yes (Hospitalization)
  Sender: FDA-Public Use
  Company Number: IT-GLAXOSMITHKLINE-B0431217A

PATIENT
  Sex: Male

DRUGS (1)
  1. ZIAGEN [Suspect]
     Indication: HIV INFECTION
     Dosage: 1TAB PER DAY
     Route: 048
     Dates: start: 20050719, end: 20050726

REACTIONS (14)
  - ASTHENIA [None]
  - CONJUNCTIVITIS VIRAL [None]
  - DIARRHOEA [None]
  - DRUG HYPERSENSITIVITY [None]
  - MALAISE [None]
  - MUSCLE DISORDER [None]
  - ORAL CANDIDIASIS [None]
  - PAIN [None]
  - PHOTOPHOBIA [None]
  - POLYNEUROPATHY [None]
  - PYREXIA [None]
  - SINUSITIS [None]
  - VISUAL ACUITY REDUCED [None]
  - VOMITING [None]
